FAERS Safety Report 9327127 (Version 3)
Quarter: 2014Q1

REPORT INFORMATION
  Report Type: Spontaneous
  Country: US (occurrence: US)
  Receive Date: 20130604
  Receipt Date: 20140307
  Transmission Date: 20141002
  Serious: No
  Sender: FDA-Public Use
  Company Number: US-AMGEN-USASP2013035575

PATIENT
  Age: 68 Year
  Sex: Female

DRUGS (5)
  1. ENBREL [Suspect]
     Indication: RHEUMATOID ARTHRITIS
     Dosage: 50 MG, QWK
     Route: 058
     Dates: start: 20130206, end: 20140216
  2. ENBREL [Suspect]
     Dosage: UNK
  3. LEFLUNOMIDE [Concomitant]
     Dosage: 20 MG, QD
     Route: 048
     Dates: start: 201110
  4. LEFLUNOMIDE [Concomitant]
     Dosage: 10 MG, QD
     Route: 048
     Dates: start: 201209
  5. PLAQUENIL                          /00072602/ [Concomitant]
     Dosage: 400 MG, QD
     Route: 048
     Dates: start: 201201

REACTIONS (16)
  - Neuropathy peripheral [Not Recovered/Not Resolved]
  - Pain in extremity [Recovered/Resolved]
  - Neck pain [Unknown]
  - Musculoskeletal pain [Not Recovered/Not Resolved]
  - Tenderness [Unknown]
  - Joint swelling [Unknown]
  - Local swelling [Unknown]
  - Arthropathy [Unknown]
  - Gait disturbance [Unknown]
  - Lordosis [Unknown]
  - Oedema [Unknown]
  - Spinal osteoarthritis [Unknown]
  - Back pain [Not Recovered/Not Resolved]
  - Vertebral foraminal stenosis [Unknown]
  - Arthralgia [Not Recovered/Not Resolved]
  - Paraesthesia [Not Recovered/Not Resolved]
